FAERS Safety Report 9214831 (Version 1)
Quarter: 2013Q2

REPORT INFORMATION
  Report Type: Spontaneous
  Country: US (occurrence: US)
  Receive Date: 20130405
  Receipt Date: 20130405
  Transmission Date: 20140414
  Serious: Yes (Hospitalization)
  Sender: FDA-Public Use
  Company Number: US-GLAXOSMITHKLINE-A0718185A

PATIENT
  Age: 62 Year
  Sex: Male
  Weight: 79.5 kg

DRUGS (12)
  1. AVANDIA [Suspect]
     Indication: TYPE 2 DIABETES MELLITUS
     Dosage: 4MG TWICE PER DAY
     Route: 048
     Dates: start: 20060223, end: 20070928
  2. AVANDAMET [Suspect]
     Indication: TYPE 2 DIABETES MELLITUS
     Route: 048
     Dates: start: 20031229, end: 20060110
  3. METFORMIN [Concomitant]
  4. GLUCOPHAGE [Concomitant]
  5. GLUCOTROL [Concomitant]
  6. DIABETA [Concomitant]
  7. LISINOPRIL [Concomitant]
  8. ASPIRIN [Concomitant]
  9. OMEGA 3 [Concomitant]
  10. MULTIVITAMIN [Concomitant]
  11. SALSALATE [Concomitant]
  12. NIASPAN [Concomitant]

REACTIONS (2)
  - Heart injury [Not Recovered/Not Resolved]
  - Acute myocardial infarction [Unknown]
